FAERS Safety Report 19354919 (Version 1)
Quarter: 2021Q2

REPORT INFORMATION
  Report Type: Spontaneous
  Country: US (occurrence: US)
  Receive Date: 20210601
  Receipt Date: 20210601
  Transmission Date: 20210717
  Serious: Yes (Hospitalization)
  Sender: FDA-Public Use
  Company Number: None

PATIENT
  Sex: Female

DRUGS (4)
  1. HIBICLENS LIQ 4% [Concomitant]
     Dates: start: 20210522
  2. SPRYCEL [Suspect]
     Active Substance: DASATINIB
     Indication: RESPIRATORY DISORDER
     Route: 048
     Dates: start: 20190417
  3. PAIN RELEIVER TAB 325MG [Concomitant]
     Dates: start: 20210530
  4. ALLOPURINOL TAB 300MG [Concomitant]
     Dates: start: 20210513

REACTIONS (1)
  - Disease recurrence [None]
